FAERS Safety Report 24180747 (Version 2)
Quarter: 2024Q3

REPORT INFORMATION
  Report Type: Spontaneous
  Country: IT (occurrence: IT)
  Receive Date: 20240806
  Receipt Date: 20240823
  Transmission Date: 20241017
  Serious: Yes (Other)
  Sender: BAUSCH AND LOMB
  Company Number: IT-ROCHE-2360786

PATIENT
  Age: 24 Year
  Sex: Male

DRUGS (12)
  1. DEXAMETHASONE [Suspect]
     Active Substance: DEXAMETHASONE
     Indication: Diffuse large B-cell lymphoma
     Route: 065
     Dates: start: 20181203, end: 20191102
  2. VINCRISTINE [Suspect]
     Active Substance: VINCRISTINE
     Indication: Diffuse large B-cell lymphoma
     Route: 065
     Dates: start: 20180716, end: 20181113
  3. RITUXIMAB [Suspect]
     Active Substance: RITUXIMAB
     Indication: Diffuse large B-cell lymphoma
     Route: 065
     Dates: start: 20180716, end: 20181113
  4. RITUXIMAB [Suspect]
     Active Substance: RITUXIMAB
     Dosage: FROM BOTH THE REGIMENS TOTAL DURATION WAS CONSIDERED AS 126 DAYS
     Route: 065
     Dates: start: 20181203, end: 20181207
  5. CISPLATIN [Suspect]
     Active Substance: CISPLATIN
     Indication: Diffuse large B-cell lymphoma
     Route: 065
     Dates: start: 20181203, end: 20190211
  6. BRENTUXIMAB [Suspect]
     Active Substance: BRENTUXIMAB
     Indication: Diffuse large B-cell lymphoma
     Dosage: NEXT DOSES ON 22/JUL/2019 AND 23/JUL/2019
     Route: 065
     Dates: start: 20190610
  7. PIXANTRONE [Suspect]
     Active Substance: PIXANTRONE
     Indication: Diffuse large B-cell lymphoma
     Route: 065
     Dates: start: 20181231, end: 20190211
  8. DOXORUBICIN [Suspect]
     Active Substance: DOXORUBICIN
     Indication: Diffuse large B-cell lymphoma
     Route: 065
     Dates: start: 20180716, end: 20181113
  9. CYTARABINE [Suspect]
     Active Substance: CYTARABINE
     Indication: Diffuse large B-cell lymphoma
     Route: 065
     Dates: start: 20181203, end: 20181207
  10. BENDAMUSTINE [Suspect]
     Active Substance: BENDAMUSTINE
     Indication: Diffuse large B-cell lymphoma
     Dosage: NEXT DOSES ON 22/JUL/2019 AND 23/JUL/2019
     Route: 065
     Dates: start: 20190610
  11. CYCLOPHOSPHAMIDE [Suspect]
     Active Substance: CYCLOPHOSPHAMIDE
     Indication: Diffuse large B-cell lymphoma
     Route: 065
     Dates: start: 20180716, end: 20181113
  12. PREDNISOLONE [Suspect]
     Active Substance: PREDNISOLONE
     Indication: Diffuse large B-cell lymphoma
     Route: 065
     Dates: start: 20180716, end: 20181113

REACTIONS (5)
  - Disease progression [Unknown]
  - Cough [Unknown]
  - Pyrexia [Unknown]
  - Haemoglobin abnormal [Unknown]
  - Drug ineffective [Unknown]
